FAERS Safety Report 17072393 (Version 1)
Quarter: 2019Q4

REPORT INFORMATION
  Report Type: Spontaneous
  Country: PL (occurrence: PL)
  Receive Date: 20191125
  Receipt Date: 20191125
  Transmission Date: 20200122
  Serious: Yes (Other)
  Sender: FDA-Public Use
  Company Number: PL-MYLANLABS-2019M1112963

PATIENT
  Age: 56 Year

DRUGS (7)
  1. VALSARTAN. [Suspect]
     Active Substance: VALSARTAN
     Indication: PRODUCT USED FOR UNKNOWN INDICATION
     Dosage: UNK
  2. FORMOTEROL [Concomitant]
     Active Substance: FORMOTEROL
     Dosage: UNK
  3. NEBIVOLOL. [Concomitant]
     Active Substance: NEBIVOLOL
     Dosage: UNK
  4. LACIDIPINE [Concomitant]
     Active Substance: LACIDIPINE
     Dosage: UNK
  5. TIOTROPIUM BROMIDE [Concomitant]
     Active Substance: TIOTROPIUM BROMIDE
     Dosage: UNK
  6. PAZOPANIB [Concomitant]
     Active Substance: PAZOPANIB
     Dosage: UNK
  7. AXITINIB [Concomitant]
     Active Substance: AXITINIB
     Dosage: UNK

REACTIONS (1)
  - Renal cancer [Unknown]
